FAERS Safety Report 20804721 (Version 1)
Quarter: 2022Q2

REPORT INFORMATION
  Report Type: Spontaneous
  Country: US (occurrence: US)
  Receive Date: 20220509
  Receipt Date: 20220509
  Transmission Date: 20220721
  Serious: Yes (Hospitalization)
  Sender: FDA-Public Use
  Company Number: US-SA-SAC20220506001334

PATIENT
  Age: 7 Year
  Sex: Male

DRUGS (2)
  1. DUPIXENT [Suspect]
     Active Substance: DUPILUMAB
     Indication: Dermatitis atopic
     Dosage: 200 MG, QOW
     Route: 058
     Dates: start: 20210831
  2. PREDNISONE [Concomitant]
     Active Substance: PREDNISONE
     Indication: Food allergy
     Dosage: ONE DOSE OF PREDNISONE
     Dates: start: 20220428

REACTIONS (2)
  - Food allergy [Unknown]
  - Product use issue [Unknown]

NARRATIVE: CASE EVENT DATE: 20210831
